FAERS Safety Report 12241747 (Version 1)
Quarter: 2016Q2

REPORT INFORMATION
  Report Type: Spontaneous
  Country: None (occurrence: None)
  Receive Date: 20160405
  Receipt Date: 20160405
  Transmission Date: 20160815
  Serious: No
  Sender: FDA-Public Use
  Company Number: None

PATIENT
  Age: 49 Year
  Sex: Female

DRUGS (1)
  1. XELODA [Suspect]
     Active Substance: CAPECITABINE
     Dosage: 2000MG QAM AND 1500 7 DAYS ON/7 DA ORAL
     Route: 048

REACTIONS (2)
  - Breast cancer metastatic [None]
  - Malignant neoplasm progression [None]

NARRATIVE: CASE EVENT DATE: 20150123
